FAERS Safety Report 25315835 (Version 2)
Quarter: 2025Q2

REPORT INFORMATION
  Report Type: Other
  Country: FR (occurrence: FR)
  Receive Date: 20250515
  Receipt Date: 20250603
  Transmission Date: 20250716
  Serious: No
  Sender: NOVARTIS
  Company Number: FR-002147023-NVSC2025FR078033

PATIENT
  Age: 63 Year
  Sex: Female

DRUGS (1)
  1. ELTROMBOPAG OLAMINE [Suspect]
     Active Substance: ELTROMBOPAG OLAMINE
     Indication: Product used for unknown indication
     Route: 065

REACTIONS (1)
  - No adverse event [Unknown]
